FAERS Safety Report 18577186 (Version 1)
Quarter: 2020Q4

REPORT INFORMATION
  Report Type: Spontaneous
  Country: PT (occurrence: PT)
  Receive Date: 20201203
  Receipt Date: 20201203
  Transmission Date: 20210114
  Serious: Yes (Disabling)
  Sender: FDA-Public Use
  Company Number: PT-CANTON LABORATORIES, LLC-2096654

PATIENT
  Age: 41 Year

DRUGS (5)
  1. NAPROSYN [Suspect]
     Active Substance: NAPROXEN
     Indication: HIV INFECTION
     Route: 048
     Dates: start: 20120524, end: 20180205
  2. ABACAVIR AND LAMIVUDINE [Concomitant]
     Active Substance: ABACAVIR SULFATE\LAMIVUDINE
     Route: 048
     Dates: start: 20180205, end: 20180205
  3. CLARITINE [Concomitant]
     Active Substance: LORATADINE
     Route: 065
  4. ATORVASTATINA TECNIGEN [Concomitant]
     Route: 065
     Dates: start: 20170117
  5. EC-NAPROSYN [Concomitant]
     Active Substance: NAPROXEN
     Route: 065
     Dates: start: 20180130

REACTIONS (1)
  - Neuropsychiatric symptoms [Unknown]

NARRATIVE: CASE EVENT DATE: 201205
